FAERS Safety Report 16778455 (Version 1)
Quarter: 2019Q3

REPORT INFORMATION
  Report Type: Spontaneous
  Country: VE (occurrence: VE)
  Receive Date: 20190906
  Receipt Date: 20190906
  Transmission Date: 20191005
  Serious: Yes (Death, Hospitalization)
  Sender: FDA-Public Use
  Company Number: PHHY2019VE167675

PATIENT
  Sex: Female

DRUGS (1)
  1. GLIVEC [Suspect]
     Active Substance: IMATINIB MESYLATE
     Indication: GASTROINTESTINAL STROMAL TUMOUR
     Dosage: 400 MG, UNK (400 MG (4 X 100MG TABLETS))
     Route: 065

REACTIONS (7)
  - Hypotension [Unknown]
  - Intestinal obstruction [Fatal]
  - Dry mouth [Unknown]
  - Nausea [Unknown]
  - Constipation [Fatal]
  - Throat irritation [Unknown]
  - Hypoaesthesia oral [Unknown]
